FAERS Safety Report 20419585 (Version 1)
Quarter: 2022Q1

REPORT INFORMATION
  Report Type: Spontaneous
  Country: GB (occurrence: GB)
  Receive Date: 20220203
  Receipt Date: 20220203
  Transmission Date: 20220423
  Serious: Yes (Hospitalization, Other)
  Sender: FDA-Public Use
  Company Number: GB-BIOGEN-2022BI01092040

PATIENT
  Age: 29 Year
  Sex: Female

DRUGS (4)
  1. TYSABRI [Suspect]
     Active Substance: NATALIZUMAB
     Indication: Relapsing multiple sclerosis
     Route: 042
     Dates: start: 20210521
  2. TYSABRI [Suspect]
     Active Substance: NATALIZUMAB
     Route: 058
     Dates: start: 20210521
  3. TYSABRI [Suspect]
     Active Substance: NATALIZUMAB
     Route: 042
     Dates: start: 20200521
  4. ONDANSETRON [Concomitant]
     Active Substance: ONDANSETRON
     Indication: Prophylaxis of nausea and vomiting
     Route: 048
     Dates: start: 202011

REACTIONS (5)
  - Paraesthesia [Recovered/Resolved]
  - Syncope [Recovered/Resolved]
  - Headache [Recovered/Resolved]
  - Vomiting [Recovered/Resolved]
  - Nausea [Recovered/Resolved]

NARRATIVE: CASE EVENT DATE: 20210520
